FAERS Safety Report 10189341 (Version 3)
Quarter: 2014Q2

REPORT INFORMATION
  Report Type: Spontaneous
  Country: US (occurrence: US)
  Receive Date: 20140522
  Receipt Date: 20140609
  Transmission Date: 20141212
  Serious: No
  Sender: FDA-Public Use
  Company Number: US-PFIZER INC-2014136112

PATIENT
  Age: 44 Year
  Sex: Male
  Weight: 77.1 kg

DRUGS (3)
  1. LYRICA [Suspect]
     Indication: NERVE INJURY
     Dosage: 50 MG, 4X/DAY
     Dates: start: 20140326
  2. LYRICA [Suspect]
     Dosage: UNK, TWO OR THREE TIMES A DAY
  3. XIFAXAN [Concomitant]
     Dosage: 500 MG, 2X/DAY
     Dates: start: 20131211

REACTIONS (7)
  - Drug ineffective [Unknown]
  - Pain [Unknown]
  - Muscle spasms [Unknown]
  - Burning sensation [Unknown]
  - Gait disturbance [Unknown]
  - Activities of daily living impaired [Unknown]
  - Therapeutic response changed [Unknown]
